FAERS Safety Report 9286965 (Version 1)
Quarter: 2013Q2

REPORT INFORMATION
  Report Type: Spontaneous
  Country: GB (occurrence: None)
  Receive Date: 20130509
  Receipt Date: 20130509
  Transmission Date: 20140414
  Serious: Yes (Other)
  Sender: FDA-Public Use
  Company Number: GER/UKI13/0029442

PATIENT
  Age: 77 Year
  Sex: 0

DRUGS (3)
  1. TERBINAFINE [Suspect]
     Indication: FUNGAL INFECTION
     Dosage: 1 DOSAGE FORMS, 1 IN 1 D, ORAL
     Route: 048
     Dates: start: 20130415, end: 20130416
  2. LANSOPRAZOLE (LANSOPRAZOLE) [Concomitant]
  3. METOPROLOL (METOPROLOL) [Concomitant]

REACTIONS (4)
  - Dizziness [None]
  - Feeling hot [None]
  - Heart rate increased [None]
  - Hyperhidrosis [None]
